FAERS Safety Report 7873119-0 (Version None)
Quarter: 2011Q4

REPORT INFORMATION
  Report Type: 
  Country: None (occurrence: None)
  Receive Date: 20111027
  Receipt Date: 20111014
  Transmission Date: 20120403
  Serious: Yes (Hospitalization)
  Sender: FDA-Public Use
  Company Number: 1000024922

PATIENT

DRUGS (2)
  1. CITALOPRAM HYDROBROMIDE [Suspect]
     Dosage: 10 MG (10 MG, 1 IN 1 D),TRANSPLACENTAL; 10 MG (10 MG, 1IN 1 D),TRANSMAMMARY
     Route: 064
     Dates: start: 20090701, end: 20100418
  2. CITALOPRAM HYDROBROMIDE [Suspect]
     Dosage: 10 MG (10 MG, 1 IN 1 D),TRANSPLACENTAL; 10 MG (10 MG, 1IN 1 D),TRANSMAMMARY
     Route: 064
     Dates: start: 20100418

REACTIONS (4)
  - CAESAREAN SECTION [None]
  - TREMOR NEONATAL [None]
  - BREECH DELIVERY [None]
  - MATERNAL DRUGS AFFECTING FOETUS [None]
